FAERS Safety Report 24276332 (Version 1)
Quarter: 2024Q3

REPORT INFORMATION
  Report Type: Spontaneous
  Country: US (occurrence: US)
  Receive Date: 20240903
  Receipt Date: 20240903
  Transmission Date: 20241017
  Serious: Yes (Hospitalization, Other)
  Sender: ZYDUS PHARM
  Company Number: US-CADILA HEALTHCARE LIMITED-US-ZYDUS-111459

PATIENT

DRUGS (69)
  1. BACLOFEN [Suspect]
     Active Substance: BACLOFEN
     Indication: Detoxification
     Dosage: 15 MILLIGRAM, VISIT 2 (1 DAY)
     Route: 065
  2. BACLOFEN [Suspect]
     Active Substance: BACLOFEN
     Dosage: 30 MILLIGRAM VISIT 3 (4 DAYS)
     Route: 065
  3. BACLOFEN [Suspect]
     Active Substance: BACLOFEN
     Dosage: 80 MILLIGRAM VISIT 4 (6 DAYS)
     Route: 065
  4. BACLOFEN [Suspect]
     Active Substance: BACLOFEN
     Dosage: 80 MILLIGRAM VISIT 5 (2 WEEKS)
     Route: 065
  5. BACLOFEN [Suspect]
     Active Substance: BACLOFEN
     Dosage: 80 MILLIGRAM VISIT 6 (3.5 WEEKS)
     Route: 065
  6. BACLOFEN [Suspect]
     Active Substance: BACLOFEN
     Dosage: 80 MILLIGRAM VISIT 7 (6 WEEKS)
     Route: 065
  7. BACLOFEN [Suspect]
     Active Substance: BACLOFEN
     Dosage: 80 MILLIGRAM VISIT 8 (7.5 WEEKS)
     Route: 065
  8. BACLOFEN [Suspect]
     Active Substance: BACLOFEN
     Dosage: 80 MILLIGRAM VISIT 9 (10 WEEKS)
     Route: 065
  9. BACLOFEN [Suspect]
     Active Substance: BACLOFEN
     Dosage: 80 MILLIGRAM VISIT 10 (12 WEEKS)
     Route: 065
  10. BACLOFEN [Suspect]
     Active Substance: BACLOFEN
     Dosage: 80 MILLIGRAM VISIT 11 (14 WEEKS)
     Route: 065
  11. BACLOFEN [Suspect]
     Active Substance: BACLOFEN
     Dosage: 80 MILLIGRAM VISIT 12 (17 WEEKS)
     Route: 065
  12. BACLOFEN [Suspect]
     Active Substance: BACLOFEN
     Dosage: 80 MILLIGRAM VISIT 13 (19 WEEKS)
     Route: 065
  13. BACLOFEN [Suspect]
     Active Substance: BACLOFEN
     Dosage: 80 MILLIGRAM VISIT 14 (21 WEEKS)
     Route: 065
  14. 4-AMINO-3-PHENYLBUTYRIC ACID [Concomitant]
     Active Substance: 4-AMINO-3-PHENYLBUTYRIC ACID
     Indication: Psychotherapy
     Dosage: 8 GRAM VISIT 1
     Route: 065
  15. 4-AMINO-3-PHENYLBUTYRIC ACID [Concomitant]
     Active Substance: 4-AMINO-3-PHENYLBUTYRIC ACID
     Dosage: 8 GRAM VISIT 2 (1 DAY)
     Route: 065
  16. 4-AMINO-3-PHENYLBUTYRIC ACID [Concomitant]
     Active Substance: 4-AMINO-3-PHENYLBUTYRIC ACID
     Dosage: 4 GRAM VISIT 3 (4 DAYS)
     Route: 065
  17. 4-AMINO-3-PHENYLBUTYRIC ACID [Concomitant]
     Active Substance: 4-AMINO-3-PHENYLBUTYRIC ACID
     Dosage: 2 GRAM VISIT 4 (6 DAYS)
     Route: 065
  18. 4-AMINO-3-PHENYLBUTYRIC ACID [Concomitant]
     Active Substance: 4-AMINO-3-PHENYLBUTYRIC ACID
     Dosage: 4 GRAM VISIT 5 (2 WEEKS)
     Route: 065
  19. 4-AMINO-3-PHENYLBUTYRIC ACID [Concomitant]
     Active Substance: 4-AMINO-3-PHENYLBUTYRIC ACID
     Dosage: 3.5-4 GRAM VISIT 6 (3.5 WEEKS)
     Route: 065
  20. 4-AMINO-3-PHENYLBUTYRIC ACID [Concomitant]
     Active Substance: 4-AMINO-3-PHENYLBUTYRIC ACID
     Dosage: 1 GRAM VISIT 7 (6 WEEKS)
     Route: 065
  21. 4-AMINO-3-PHENYLBUTYRIC ACID [Concomitant]
     Active Substance: 4-AMINO-3-PHENYLBUTYRIC ACID
     Dosage: 0.5 GRAM VISIT 8 (7.5 WEEKS)
     Route: 065
  22. 4-AMINO-3-PHENYLBUTYRIC ACID [Concomitant]
     Active Substance: 4-AMINO-3-PHENYLBUTYRIC ACID
     Dosage: 0.5 GRAM VISIT 9 (10 WEEKS)
     Route: 065
  23. 4-AMINO-3-PHENYLBUTYRIC ACID [Concomitant]
     Active Substance: 4-AMINO-3-PHENYLBUTYRIC ACID
     Dosage: 0.25 MILLIGRAM VISIT 10 (12 WEEKS)
     Route: 065
  24. 4-AMINO-3-PHENYLBUTYRIC ACID [Concomitant]
     Active Substance: 4-AMINO-3-PHENYLBUTYRIC ACID
     Dosage: 0.25 MILLIGRAM VISIT 11 (14 WEEKS)
     Route: 065
  25. 4-AMINO-3-PHENYLBUTYRIC ACID [Concomitant]
     Active Substance: 4-AMINO-3-PHENYLBUTYRIC ACID
     Dosage: ONE-THIRD OF SCOOP VISIT 12 (17 WEEKS)
     Route: 065
  26. 4-AMINO-3-PHENYLBUTYRIC ACID [Concomitant]
     Active Substance: 4-AMINO-3-PHENYLBUTYRIC ACID
     Dosage: SPRITZ OF POWDER VISIT 13 (19 WEEKS)
     Route: 065
  27. LORAZEPAM [Concomitant]
     Active Substance: LORAZEPAM
     Indication: Product used for unknown indication
     Dosage: 3 MILLIGRAM, QD VISIT 1
     Route: 065
  28. LORAZEPAM [Concomitant]
     Active Substance: LORAZEPAM
     Dosage: 6 MILLIGRAM, QD VISIT 2 (1 DAY)
     Route: 065
  29. LORAZEPAM [Concomitant]
     Active Substance: LORAZEPAM
     Dosage: 6 MILLIGRAM, QD VISIT 3 (4 DAYS)
     Route: 065
  30. LORAZEPAM [Concomitant]
     Active Substance: LORAZEPAM
     Dosage: 24 MILLIGRAM VISIT 4 (6 DAYS)
     Route: 065
  31. LORAZEPAM [Concomitant]
     Active Substance: LORAZEPAM
     Dosage: 80 MILLIGRAM, QD VISIT 5 (2 WEEKS)
     Route: 065
  32. LORAZEPAM [Concomitant]
     Active Substance: LORAZEPAM
     Dosage: 24 MILLIGRAM, QD VISIT 6 (3.5 WEEKS)
     Route: 065
  33. LORAZEPAM [Concomitant]
     Active Substance: LORAZEPAM
     Dosage: 24 MILLIGRAM, QD VISIT 7 (6 WEEKS)
     Route: 065
  34. LORAZEPAM [Concomitant]
     Active Substance: LORAZEPAM
     Dosage: 24 MILLIGRAM, QD VISIT 8 (7.5 WEEKS)
     Route: 065
  35. LORAZEPAM [Concomitant]
     Active Substance: LORAZEPAM
     Dosage: 24 MILLIGRAM, QD VISIT 9 (10 WEEKS)
     Route: 065
  36. LORAZEPAM [Concomitant]
     Active Substance: LORAZEPAM
     Dosage: 24 MILLIGRAM, QD VISIT 10 (12 WEEKS)
     Route: 065
  37. LORAZEPAM [Concomitant]
     Active Substance: LORAZEPAM
     Dosage: 24 MILLIGRAM, QD VISIT 11 (14 WEEKS)
     Route: 065
  38. LORAZEPAM [Concomitant]
     Active Substance: LORAZEPAM
     Dosage: 24 MILLIGRAM, QD VISIT 12 (17 WEEKS)
     Route: 065
  39. LORAZEPAM [Concomitant]
     Active Substance: LORAZEPAM
     Dosage: 24 MILLIGRAM, QD VISIT 13 (19 WEEKS)
     Route: 065
  40. LORAZEPAM [Concomitant]
     Active Substance: LORAZEPAM
     Dosage: 22 MILLIGRAM, QD VISIT 14 (21 WEEKS)
     Route: 065
  41. GABAPENTIN [Concomitant]
     Active Substance: GABAPENTIN
     Indication: Product used for unknown indication
     Dosage: 900 MILLIGRAM, QD VISIT 2 (1 DAY)
     Route: 065
  42. GABAPENTIN [Concomitant]
     Active Substance: GABAPENTIN
     Dosage: 900 MILLIGRAM, QD VISIT 3 (4 DAYS)
     Route: 065
  43. GABAPENTIN [Concomitant]
     Active Substance: GABAPENTIN
     Dosage: 900 MILLIGRAM, QD VISIT 4 (6 DAYS)
     Route: 065
  44. GABAPENTIN [Concomitant]
     Active Substance: GABAPENTIN
     Dosage: 900 MILLIGRAM, QD VISIT 5 (2 WEEKS)
     Route: 065
  45. GABAPENTIN [Concomitant]
     Active Substance: GABAPENTIN
     Dosage: 900 MILLIGRAM, QD VISIT 7 (6 WEEKS)
     Route: 065
  46. GABAPENTIN [Concomitant]
     Active Substance: GABAPENTIN
     Dosage: 900 MILLIGRAM VISIT 8 (7.5 WEEKS)
     Route: 065
  47. GABAPENTIN [Concomitant]
     Active Substance: GABAPENTIN
     Dosage: 900 MILLIGRAM VISIT 9 (10 WEEKS)
     Route: 065
  48. GABAPENTIN [Concomitant]
     Active Substance: GABAPENTIN
     Dosage: 900 MILLIGRAM VISIT 10 (12 WEEKS)
     Route: 065
  49. GABAPENTIN [Concomitant]
     Active Substance: GABAPENTIN
     Dosage: 900 MILLIGRAM, QD VISIT 11 (14 WEEKS)
     Route: 065
  50. GABAPENTIN [Concomitant]
     Active Substance: GABAPENTIN
     Dosage: 900 MILLIGRAM, QD VISIT 12 (17 WEEKS)
     Route: 065
  51. GABAPENTIN [Concomitant]
     Active Substance: GABAPENTIN
     Dosage: 900 MILLIGRAM VISIT 13 (19 WEEKS)
     Route: 065
  52. GABAPENTIN [Concomitant]
     Active Substance: GABAPENTIN
     Dosage: 900 MILLIGRAM, QD VISIT 14 (21 WEEKS)
     Route: 065
  53. CLONIDINE [Concomitant]
     Active Substance: CLONIDINE
     Indication: Product used for unknown indication
     Dosage: 0.3 MILLIGRAM, QD VISIT 2 (1 DAY)
     Route: 065
  54. CLONIDINE [Concomitant]
     Active Substance: CLONIDINE
     Dosage: 0.3 MILLIGRAM, QD VISIT 3 (4 DAYS)
     Route: 065
  55. CLONIDINE [Concomitant]
     Active Substance: CLONIDINE
     Dosage: 0.3 MILLIGRAM, QD VISIT 6 (3.5 WEEKS)
     Route: 065
  56. CLONIDINE [Concomitant]
     Active Substance: CLONIDINE
     Dosage: 0.3 MILLIGRAM, QD VISIT 7 (6 WEEKS)
     Route: 065
  57. CLONIDINE [Concomitant]
     Active Substance: CLONIDINE
     Dosage: 0.3 MILLIGRAM, QD VISIT 8 (7.5 WEEKS)
     Route: 065
  58. CLONIDINE [Concomitant]
     Active Substance: CLONIDINE
     Dosage: 0.3 MILLIGRAM, QD VISIT 9 (10 WEEKS)
     Route: 065
  59. CLONIDINE [Concomitant]
     Active Substance: CLONIDINE
     Dosage: 0.3 MILLIGRAM, QD VISIT 10 (12 WEEKS)
     Route: 065
  60. CLONIDINE [Concomitant]
     Active Substance: CLONIDINE
     Dosage: 0.3 MILLIGRAM, QD VISIT 11 (14 WEEKS)
     Route: 065
  61. CLONIDINE [Concomitant]
     Active Substance: CLONIDINE
     Dosage: 0.3 MILLIGRAM, QD VISIT 12 (17 WEEKS)
     Route: 065
  62. CLONIDINE [Concomitant]
     Active Substance: CLONIDINE
     Dosage: 0.3 MILLIGRAM, QD VISIT 13 (19 WEEKS)
     Route: 065
  63. CLONIDINE [Concomitant]
     Active Substance: CLONIDINE
     Dosage: 0.3 MILLIGRAM, QD VISIT 14 (21 WEEKS)
     Route: 065
  64. PROPRANOLOL [Concomitant]
     Active Substance: PROPRANOLOL HYDROCHLORIDE
     Indication: Product used for unknown indication
     Dosage: 30 MILLIGRAM, QD VISIT 4 (6 DAYS)
     Route: 065
  65. PROPRANOLOL [Concomitant]
     Active Substance: PROPRANOLOL HYDROCHLORIDE
     Dosage: 30 MILLIGRAM, QD VISIT 5 (2 WEEKS)
     Route: 065
  66. PROPRANOLOL [Concomitant]
     Active Substance: PROPRANOLOL HYDROCHLORIDE
     Dosage: 30 MILLIGRAM, QD VISIT 6 (3.5 WEEKS)
     Route: 065
  67. PROPRANOLOL [Concomitant]
     Active Substance: PROPRANOLOL HYDROCHLORIDE
     Dosage: 30 MILLIGRAM, QD VISIT 7 (6 WEEKS)
     Route: 065
  68. PROPRANOLOL [Concomitant]
     Active Substance: PROPRANOLOL HYDROCHLORIDE
     Dosage: 30 MILLIGRAM, QD VISIT 8 (7.5 WEEKS)
     Route: 065
  69. PROPRANOLOL [Concomitant]
     Active Substance: PROPRANOLOL HYDROCHLORIDE
     Dosage: 30 MILLIGRAM, QD VISIT 9 (10 WEEKS)
     Route: 065

REACTIONS (4)
  - Irritability [Unknown]
  - Anxiety [Unknown]
  - Drug dependence [Unknown]
  - Withdrawal syndrome [Unknown]
